FAERS Safety Report 24794163 (Version 1)
Quarter: 2024Q4

REPORT INFORMATION
  Report Type: Spontaneous
  Country: FR (occurrence: FR)
  Receive Date: 20241231
  Receipt Date: 20241231
  Transmission Date: 20250115
  Serious: Yes (Hospitalization, Other)
  Sender: ADVANZ PHARMA
  Company Number: None

PATIENT

DRUGS (3)
  1. ZONISAMIDE [Suspect]
     Active Substance: ZONISAMIDE
     Indication: Epilepsy
     Dosage: 400 MG, QD
     Route: 048
     Dates: start: 20240311
  2. ETHOSUXIMIDE [Suspect]
     Active Substance: ETHOSUXIMIDE
     Indication: Epilepsy
     Dosage: 1000 MG, QD
     Route: 048
     Dates: start: 20241106, end: 20241114
  3. ESLICARBAZEPINE [Suspect]
     Active Substance: ESLICARBAZEPINE
     Indication: Epilepsy
     Dosage: 1600 MG, QD
     Route: 048
     Dates: start: 20180126

REACTIONS (3)
  - Brief psychotic disorder with marked stressors [Unknown]
  - Hallucination, visual [Unknown]
  - Hallucination [Unknown]

NARRATIVE: CASE EVENT DATE: 20241113
